FAERS Safety Report 22260248 (Version 1)
Quarter: 2023Q2

REPORT INFORMATION
  Report Type: Spontaneous
  Country: US (occurrence: US)
  Receive Date: 20230427
  Receipt Date: 20230427
  Transmission Date: 20230722
  Serious: No
  Sender: FDA-Public Use
  Company Number: US-BAXTER-2023BAX019778

PATIENT

DRUGS (1)
  1. MAGNESIUM SULFATE [Suspect]
     Active Substance: MAGNESIUM SULFATE
     Dosage: 50 ML AT A FLOW-RATE OF 25 ML/HR AT A DOSE OF 1 G/HR TO BE DELIVERED BY THE SPECTRUM IQ INFUSION PUM
     Route: 042

REACTIONS (2)
  - Headache [Recovered/Resolved]
  - Device infusion issue [Unknown]

NARRATIVE: CASE EVENT DATE: 20230106
